FAERS Safety Report 10235513 (Version 1)
Quarter: 2014Q2

REPORT INFORMATION
  Report Type: Spontaneous
  Country: NO (occurrence: None)
  Receive Date: 20140611
  Receipt Date: 20140611
  Transmission Date: 20141212
  Serious: Yes (Death, Other)
  Sender: FDA-Public Use
  Company Number: 2377231

PATIENT
  Age: 65 Year
  Sex: Female

DRUGS (5)
  1. VINCRISTINE SULFATE [Suspect]
     Indication: T-CELL TYPE ACUTE LEUKAEMIA
     Dosage: 1.5 MG/M 2 MILLIGRAM(S)/SQ. METER, INTRAVENOUS (NOT OTHERWISE SPECIFIED)?
     Route: 042
  2. PREDNISONE [Suspect]
     Indication: T-CELL TYPE ACUTE LEUKAEMIA
     Dosage: 40 MG/M 2 MILLIGRAM(S)/SQ. METER, ORAL?
     Route: 048
  3. L-ASPARAGINASE [Suspect]
     Indication: T-CELL TYPE ACUTE LEUKAEMIA
     Dosage: 10000 IU INTERNATIONAL UNIT(S), INTRAVENOUS (NOT OTHERWISE SPECIFIED)?
     Route: 042
  4. DOXORUBICIN [Suspect]
     Indication: T-CELL TYPE ACUTE LEUKAEMIA
     Dosage: 30 MG/M 2 MILLIGRAM(S)/SQ. METER, INTRAVENOUS (NOT OTHERWISE SPECIFIED)?
     Route: 042
  5. CYCLOPHOSPHAMIDE [Suspect]
     Indication: T-CELL TYPE ACUTE LEUKAEMIA
     Dosage: 750 MG/M 2 MILLIGRAM(S)/SQ. METER, INTRAVENOUS (NOT OTHERWISE SPECIFIED)?
     Route: 042

REACTIONS (2)
  - Intracranial venous sinus thrombosis [None]
  - Haematotoxicity [None]
